FAERS Safety Report 14483099 (Version 2)
Quarter: 2018Q1

REPORT INFORMATION
  Report Type: Spontaneous
  Country: US (occurrence: US)
  Receive Date: 20180203
  Receipt Date: 20180301
  Transmission Date: 20180509
  Serious: No
  Sender: FDA-Public Use
  Company Number: US-JNJFOC-20180116769

PATIENT
  Age: 69 Year
  Sex: Female
  Weight: 90.27 kg

DRUGS (1)
  1. STELARA [Suspect]
     Active Substance: USTEKINUMAB
     Indication: PSORIATIC ARTHROPATHY
     Route: 058
     Dates: start: 20170620, end: 20180109

REACTIONS (2)
  - Product quality issue [Unknown]
  - Drug dose omission [Unknown]

NARRATIVE: CASE EVENT DATE: 20180112
